FAERS Safety Report 9330715 (Version 9)
Quarter: 2013Q3

REPORT INFORMATION
  Report Type: Spontaneous
  Country: US (occurrence: US)
  Receive Date: 20130605
  Receipt Date: 20130910
  Transmission Date: 20140515
  Serious: Yes (Hospitalization)
  Sender: FDA-Public Use
  Company Number: US-NOVOPROD-379684

PATIENT
  Age: 58 Year
  Sex: Male
  Weight: 102.72 kg

DRUGS (9)
  1. NOVOLOG [Suspect]
     Indication: TYPE 2 DIABETES MELLITUS
     Dosage: APPROXIMATELY 32 U, SINGLE (PER ER NOTE)
     Route: 058
  2. NOVOLOG [Suspect]
     Dosage: 20 U, SINGLE (PER MEDICINE ADMISSION NOTE)
     Route: 058
  3. NOVOLOG [Suspect]
     Dosage: 30 U, QD
     Route: 058
     Dates: start: 20121226, end: 20130228
  4. NOVOLOG [Suspect]
     Dosage: 25 U, QD
     Route: 058
     Dates: start: 20130301, end: 20130411
  5. NOVOLOG [Suspect]
     Dosage: 20 U, QD
     Route: 058
     Dates: start: 20130412, end: 201304
  6. NOVOLOG [Suspect]
     Dosage: 36 U, QD
     Route: 058
     Dates: start: 201304, end: 20130521
  7. NOVOLOG [Suspect]
     Dosage: 25 U QD
     Route: 058
     Dates: start: 20130522, end: 20130715
  8. NPH                                /00030513/ [Concomitant]
     Indication: TYPE 2 DIABETES MELLITUS
     Dosage: 15 U, UNK
     Route: 058
  9. NPH                                /00030513/ [Concomitant]
     Dosage: 1 U QD; TITRATING BASED ON SELF MONITORED BLOOD GLUCOSE 20-27 UNITS
     Route: 058
     Dates: start: 20120120, end: 20130521

REACTIONS (4)
  - Hypotension [Recovered/Resolved]
  - Renal failure acute [Recovered/Resolved]
  - Hypoglycaemia [Recovered/Resolved]
  - Upper respiratory tract infection [Unknown]
